FAERS Safety Report 23529716 (Version 7)
Quarter: 2025Q1

REPORT INFORMATION
  Report Type: Spontaneous
  Country: US (occurrence: US)
  Receive Date: 20240216
  Receipt Date: 20250301
  Transmission Date: 20250409
  Serious: No
  Sender: SANOFI AVENTIS
  Company Number: US-SA-SAC20240208001301

PATIENT
  Age: 66 Year
  Sex: Female

DRUGS (7)
  1. DUPIXENT [Suspect]
     Active Substance: DUPILUMAB
     Indication: Dermatitis atopic
     Route: 058
     Dates: start: 20240205, end: 20240205
  2. DUPIXENT [Suspect]
     Active Substance: DUPILUMAB
     Indication: Eczema
     Dosage: 300 MG, QOW
     Route: 058
     Dates: start: 202402, end: 2024
  3. DUPIXENT [Suspect]
     Active Substance: DUPILUMAB
     Dosage: 300 MG, QOW
     Route: 058
     Dates: start: 2024
  4. RINVOQ [Concomitant]
     Active Substance: UPADACITINIB
  5. TRIAMCINOLONE [Concomitant]
     Active Substance: TRIAMCINOLONE
  6. EUCRISA [Concomitant]
     Active Substance: CRISABOROLE
  7. HYDROCORTISONE [Concomitant]
     Active Substance: HYDROCORTISONE

REACTIONS (19)
  - Dry skin [Unknown]
  - Pain [Recovered/Resolved]
  - Throat irritation [Recovered/Resolved]
  - Pyrexia [Recovered/Resolved]
  - Frequent bowel movements [Not Recovered/Not Resolved]
  - Limb discomfort [Unknown]
  - Condition aggravated [Unknown]
  - Tooth infection [Unknown]
  - Tooth abscess [Unknown]
  - Skin irritation [Recovering/Resolving]
  - Rash pruritic [Recovering/Resolving]
  - Pain in extremity [Recovered/Resolved]
  - Pruritus [Recovered/Resolved]
  - Headache [Not Recovered/Not Resolved]
  - Pruritus [Recovering/Resolving]
  - Inappropriate schedule of product administration [Unknown]
  - Injection site pain [Recovered/Resolved]
  - Eczema [Recovering/Resolving]
  - Pruritus [Recovering/Resolving]

NARRATIVE: CASE EVENT DATE: 20240101
